FAERS Safety Report 9120796 (Version 1)
Quarter: 2013Q1

REPORT INFORMATION
  Report Type: Spontaneous
  Country: US (occurrence: US)
  Receive Date: 20130226
  Receipt Date: 20130226
  Transmission Date: 20140127
  Serious: No
  Sender: FDA-Public Use
  Company Number: US-TARO-2012P1060580

PATIENT
  Sex: Female

DRUGS (1)
  1. NYSTATIN [Suspect]
     Route: 061
     Dates: start: 201209, end: 2012

REACTIONS (5)
  - Drug ineffective [Recovered/Resolved]
  - Pruritus [Recovered/Resolved]
  - Erythema [Recovered/Resolved]
  - Burning sensation [Recovered/Resolved]
  - Fungal infection [Recovered/Resolved]
